FAERS Safety Report 6757690-8 (Version None)
Quarter: 2010Q2

REPORT INFORMATION
  Report Type: 
  Country: None (occurrence: None)
  Receive Date: 20100602
  Receipt Date: 20100524
  Transmission Date: 20101027
  Serious: Yes (Death, Hospitalization)
  Sender: FDA-Public Use
  Company Number: WAES 1005USA02826

PATIENT
  Age: 47 Year
  Sex: Male
  Weight: 98.8842 kg

DRUGS (2)
  1. CAP VORINOSTAT UNK [Suspect]
     Indication: ACUTE MYELOID LEUKAEMIA
     Dosage: 300 MG/DAILY/PO
     Route: 048
     Dates: start: 20100503, end: 20100516
  2. VELCADE [Suspect]
     Indication: ACUTE MYELOID LEUKAEMIA
     Dates: end: 20100422

REACTIONS (12)
  - ANURIA [None]
  - BRAIN DEATH [None]
  - CARDIAC ARREST [None]
  - ELECTROMECHANICAL DISSOCIATION [None]
  - HAEMODYNAMIC INSTABILITY [None]
  - INFECTION [None]
  - LUNG INFILTRATION [None]
  - MYOCARDIAL INFARCTION [None]
  - MYOCARDIAL ISCHAEMIA [None]
  - PUPIL FIXED [None]
  - PYREXIA [None]
  - UNRESPONSIVE TO STIMULI [None]
